FAERS Safety Report 15426380 (Version 1)
Quarter: 2018Q3

REPORT INFORMATION
  Report Type: Spontaneous
  Country: US (occurrence: US)
  Receive Date: 20180925
  Receipt Date: 20180925
  Transmission Date: 20181010
  Serious: No
  Sender: FDA-Public Use
  Company Number: US-INDIVIOR LIMITED-INDV-104467-2017

PATIENT
  Sex: Male

DRUGS (1)
  1. SUBOXONE [Suspect]
     Active Substance: BUPRENORPHINE HYDROCHLORIDE\NALOXONE HYDROCHLORIDE
     Indication: PRODUCT USED FOR UNKNOWN INDICATION
     Dosage: 8 MG UNK
     Route: 060

REACTIONS (5)
  - Feeling abnormal [Unknown]
  - Product preparation error [Unknown]
  - Drug ineffective [Unknown]
  - Lethargy [Unknown]
  - Restlessness [Unknown]

NARRATIVE: CASE EVENT DATE: 2017
